FAERS Safety Report 21998109 (Version 1)
Quarter: 2023Q1

REPORT INFORMATION
  Report Type: Spontaneous
  Country: US (occurrence: US)
  Receive Date: 20230216
  Receipt Date: 20230216
  Transmission Date: 20230418
  Serious: Yes (Death, Hospitalization, Other)
  Sender: FDA-Public Use
  Company Number: US-IPCA LABORATORIES LIMITED-IPC-2023-US-000218

PATIENT

DRUGS (1)
  1. HYDROXYCHLOROQUINE [Suspect]
     Active Substance: HYDROXYCHLOROQUINE
     Indication: Product used for unknown indication
     Dosage: 3 GRAM
     Route: 065

REACTIONS (21)
  - Encephalopathy [Fatal]
  - Respiratory distress [Fatal]
  - Depressed level of consciousness [Fatal]
  - Defect conduction intraventricular [Fatal]
  - Electrocardiogram QT prolonged [Fatal]
  - Hypokalaemia [Fatal]
  - Electrolyte imbalance [Fatal]
  - Shock [Fatal]
  - Condition aggravated [Fatal]
  - Multiple organ dysfunction syndrome [Fatal]
  - Hypophosphataemia [Fatal]
  - Lactic acidosis [Fatal]
  - Acute kidney injury [Fatal]
  - Large intestinal obstruction [Fatal]
  - Intestinal pseudo-obstruction [Fatal]
  - Ejection fraction [Fatal]
  - Ventricular dyssynchrony [Fatal]
  - Bradycardia [Fatal]
  - Cardiac arrest [Fatal]
  - Toxicity to various agents [Fatal]
  - Intentional overdose [Fatal]
